FAERS Safety Report 13424198 (Version 2)
Quarter: 2017Q2

REPORT INFORMATION
  Report Type: Spontaneous
  Country: US (occurrence: US)
  Receive Date: 20170410
  Receipt Date: 20170503
  Transmission Date: 20170830
  Serious: Yes (Hospitalization)
  Sender: FDA-Public Use
  Company Number: US-009507513-1704USA001658

PATIENT
  Age: 61 Year
  Sex: Female

DRUGS (1)
  1. ZEPATIER [Suspect]
     Active Substance: ELBASVIR\GRAZOPREVIR
     Indication: HEPATITIS C
     Dosage: 50/100 MG; ONCE A DAY
     Route: 048
     Dates: start: 20170225

REACTIONS (1)
  - Rash pruritic [Unknown]

NARRATIVE: CASE EVENT DATE: 20170403
